FAERS Safety Report 6695659-2 (Version None)
Quarter: 2010Q2

REPORT INFORMATION
  Report Type: 
  Country: None (occurrence: None)
  Receive Date: 20100426
  Receipt Date: 20100415
  Transmission Date: 20101027
  Serious: No
  Sender: FDA-Public Use
  Company Number: US-BIOGENIDEC-2010BI012529

PATIENT
  Age: 62 Year
  Sex: Female

DRUGS (5)
  1. AVONEX [Suspect]
     Indication: MULTIPLE SCLEROSIS
     Route: 030
     Dates: start: 20001101, end: 20030101
  2. AVONEX [Suspect]
     Route: 030
     Dates: start: 20030101
  3. LOPRESSOR [Concomitant]
     Indication: HYPERTENSION
     Route: 048
  4. POTASSIUM [Concomitant]
     Indication: HYPERTENSION
     Route: 048
  5. GERITOL [Concomitant]
     Indication: SUPPLEMENTATION THERAPY
     Route: 048

REACTIONS (3)
  - COUGH [None]
  - DYSPHONIA [None]
  - NASOPHARYNGITIS [None]
